FAERS Safety Report 4437542-9 (Version None)
Quarter: 2004Q3

REPORT INFORMATION
  Report Type: 
  Country: None (occurrence: None)
  Receive Date: 20040827
  Receipt Date: 20040816
  Transmission Date: 20050211
  Serious: Yes (Hospitalization, Other)
  Sender: FDA-Public Use
  Company Number: HQWYE992505AUG04

PATIENT
  Age: 67 Year
  Sex: Female

DRUGS (3)
  1. ARTANE [Suspect]
     Indication: PARKINSON'S DISEASE
     Dosage: 2 MG 1X PER 1 DAY ORAL
     Route: 048
     Dates: start: 19960410, end: 19960618
  2. PARLODEL [Concomitant]
  3. SYMMETREL [Concomitant]

REACTIONS (1)
  - HYPOTONIA [None]
